FAERS Safety Report 12917745 (Version 4)
Quarter: 2017Q1

REPORT INFORMATION
  Report Type: Spontaneous
  Country: US (occurrence: US)
  Receive Date: 20161107
  Receipt Date: 20170306
  Transmission Date: 20170428
  Serious: No
  Sender: FDA-Public Use
  Company Number: US-PFIZER INC-2016514827

PATIENT
  Sex: Female

DRUGS (1)
  1. LYRICA [Suspect]
     Active Substance: PREGABALIN
     Dosage: UNK

REACTIONS (5)
  - Intentional product use issue [Unknown]
  - Malaise [Unknown]
  - Vomiting [Unknown]
  - Withdrawal syndrome [Unknown]
  - Drug dose omission [Unknown]
